FAERS Safety Report 12608879 (Version 3)
Quarter: 2016Q3

REPORT INFORMATION
  Report Type: Spontaneous
  Country: JP (occurrence: JP)
  Receive Date: 20160730
  Receipt Date: 20160831
  Transmission Date: 20161109
  Serious: Yes (Hospitalization)
  Sender: FDA-Public Use
  Company Number: JP-AMGEN-JPNSP2016098694

PATIENT
  Age: 58 Year
  Sex: Female
  Weight: 47 kg

DRUGS (11)
  1. RESTAMIN [Concomitant]
     Active Substance: DIPHENHYDRAMINE
     Dosage: 50 MG, QD
     Route: 048
     Dates: start: 20160622
  2. G-LASTA [Suspect]
     Active Substance: PEGFILGRASTIM
     Indication: COLONY STIMULATING FACTOR PROPHYLAXIS
     Dosage: 3.6 MG, QD
     Route: 058
     Dates: start: 20160623
  3. DECADRON [Concomitant]
     Active Substance: DEXAMETHASONE
     Dosage: 4 MG, TID
     Route: 048
     Dates: start: 20160623, end: 20160625
  4. CRAVIT [Concomitant]
     Active Substance: LEVOFLOXACIN
     Indication: PYREXIA
     Dosage: UNK
     Route: 065
     Dates: start: 20160701
  5. ENDOXAN [Suspect]
     Active Substance: CYCLOPHOSPHAMIDE
     Indication: BREAST CANCER
     Dosage: 880 MG, QD
     Route: 041
     Dates: start: 20160622
  6. SEROTONE [Concomitant]
     Active Substance: AZASETRON HYDROCHLORIDE
     Dosage: 10 MG, QD
     Route: 048
     Dates: start: 20160622
  7. DECADRON [Concomitant]
     Active Substance: DEXAMETHASONE
     Dosage: 6.6 MG, QD
     Route: 041
     Dates: start: 20160622
  8. ZANTAC [Concomitant]
     Active Substance: RANITIDINE HYDROCHLORIDE
     Dosage: 150 MG, UNK
     Route: 048
     Dates: start: 20160622
  9. SELBEX [Concomitant]
     Active Substance: TEPRENONE
     Dosage: 50 MG, UNK
     Route: 048
     Dates: start: 20160622
  10. DOCETAXEL. [Suspect]
     Active Substance: DOCETAXEL
     Indication: BREAST CANCER
     Dosage: 108 MG, QD
     Route: 041
     Dates: start: 20160622
  11. NAUZELIN [Concomitant]
     Active Substance: DOMPERIDONE
     Dosage: 10 DF, UNK
     Route: 048
     Dates: start: 20160622

REACTIONS (2)
  - Pyrexia [Recovered/Resolved]
  - Pleural effusion [Recovering/Resolving]

NARRATIVE: CASE EVENT DATE: 20160701
